FAERS Safety Report 16653925 (Version 2)
Quarter: 2019Q3

REPORT INFORMATION
  Report Type: Spontaneous
  Country: US (occurrence: US)
  Receive Date: 20190731
  Receipt Date: 20190802
  Transmission Date: 20191004
  Serious: Yes (Other)
  Sender: FDA-Public Use
  Company Number: US-PFIZER INC-2019326177

PATIENT
  Sex: Female

DRUGS (1)
  1. CEFEPIME HCL [Suspect]
     Active Substance: CEFEPIME HYDROCHLORIDE
     Indication: PNEUMONIA
     Dosage: UNK

REACTIONS (6)
  - Coma [Recovered/Resolved]
  - Swelling [Unknown]
  - Blood bilirubin increased [Unknown]
  - Yellow skin [Unknown]
  - Toxicity to various agents [Unknown]
  - Weight increased [Unknown]

NARRATIVE: CASE EVENT DATE: 201907
